FAERS Safety Report 19460694 (Version 1)
Quarter: 2021Q2

REPORT INFORMATION
  Report Type: Other
  Country: DE (occurrence: DE)
  Receive Date: 20210625
  Receipt Date: 20210625
  Transmission Date: 20210717
  Serious: Yes (Other)
  Sender: FDA-Public Use
  Company Number: DE-MACLEODS PHARMA UK LTD-MAC2021031633

PATIENT

DRUGS (21)
  1. VALSARTAN HEXAL [Suspect]
     Active Substance: VALSARTAN
     Dosage: 80 MILLIGRAM, QD, 80 MG, QD (80 MG/ 12.5 MG)
     Route: 065
     Dates: start: 20140127, end: 20140713
  2. VALSARTAN HEXAL [Suspect]
     Active Substance: VALSARTAN
     Dosage: 80 MILLIGRAM, QD, 80 MG, QD (HALF 80 MG)
     Route: 065
     Dates: start: 20170406, end: 20180704
  3. VENORUTON INTENS [Concomitant]
     Indication: PRODUCT USED FOR UNKNOWN INDICATION
     Dosage: UNK
     Route: 065
     Dates: start: 1997
  4. OLMESARTAN [Concomitant]
     Active Substance: OLMESARTAN
     Indication: PRODUCT USED FOR UNKNOWN INDICATION
     Dosage: UNK
     Route: 065
  5. VALSARTAN. [Suspect]
     Active Substance: VALSARTAN
     Dosage: 0.5 DOSAGE FORM, 80 MG, HALF A TABLET
     Route: 065
     Dates: start: 20151128
  6. VALSARTAN HEXAL [Suspect]
     Active Substance: VALSARTAN
     Indication: PRODUCT USED FOR UNKNOWN INDICATION
     Dosage: 80 MILLIGRAM, 80 MG (80 MG/ 12.5 MG)
     Route: 065
     Dates: start: 201209
  7. VALSARTAN HEXAL [Suspect]
     Active Substance: VALSARTAN
     Dosage: 80 MILLIGRAM, BID, 160 MG QD, (80 MG/ 12.5 MG)
     Route: 065
     Dates: start: 20140714
  8. CANDESARTAN/HYDROCHLORTHIAZIDE [Concomitant]
     Indication: PRODUCT USED FOR UNKNOWN INDICATION
     Dosage: UNK
     Route: 065
  9. DICLOFENAC/ORPHENADRINE [Suspect]
     Active Substance: DICLOFENAC\ORPHENADRINE
     Indication: PRODUCT USED FOR UNKNOWN INDICATION
     Dosage: UNK
     Route: 065
  10. METHOTREXATE. [Concomitant]
     Active Substance: METHOTREXATE
     Indication: PRODUCT USED FOR UNKNOWN INDICATION
     Dosage: UNK
     Route: 065
  11. MAGNESIUM [Concomitant]
     Active Substance: MAGNESIUM
     Indication: PRODUCT USED FOR UNKNOWN INDICATION
     Dosage: UNK
     Route: 065
     Dates: start: 1997
  12. CEFUROXIME. [Concomitant]
     Active Substance: CEFUROXIME
     Indication: PRODUCT USED FOR UNKNOWN INDICATION
     Dosage: UNK
     Route: 065
  13. VALSARTAN. [Suspect]
     Active Substance: VALSARTAN
     Dosage: 80 MILLIGRAM, QD, 80 MG, QD (80MG/12.5 MG)
     Route: 065
     Dates: start: 20150421
  14. ALUMINIUM GLYCINATE/ACETYLSALICYLIC ACID/MAGNESIUM CARBONATE [Suspect]
     Active Substance: ASPIRIN\DIHYDROXYALUMINUM AMINOACETATE ANHYDROUS\MAGNESIUM CARBONATE
     Indication: PRODUCT USED FOR UNKNOWN INDICATION
     Dosage: UNK
     Route: 065
  15. BACTOFLOX [Concomitant]
     Indication: PRODUCT USED FOR UNKNOWN INDICATION
     Dosage: UNK
     Route: 065
  16. METRONIDAZOLE. [Concomitant]
     Active Substance: METRONIDAZOLE
     Indication: PRODUCT USED FOR UNKNOWN INDICATION
     Dosage: UNK
     Route: 065
  17. VALSARTAN. [Suspect]
     Active Substance: VALSARTAN
     Indication: PRODUCT USED FOR UNKNOWN INDICATION
     Dosage: 80 MILLIGRAM, BID, 160 MG QD (80 MG/12.5 MG)
     Route: 065
     Dates: start: 20150421
  18. VALSACOR COMP [Concomitant]
     Active Substance: HYDROCHLOROTHIAZIDE\VALSARTAN
     Indication: PRODUCT USED FOR UNKNOWN INDICATION
     Dosage: UNK
     Route: 065
     Dates: start: 20151128, end: 201807
  19. VALSARTAN HEXAL [Suspect]
     Active Substance: VALSARTAN
     Dosage: 80 MILLIGRAM, QD, 80 MG, QD (HALF 80 MG)
     Route: 065
     Dates: start: 20180705, end: 20180715
  20. VALSARTAN HEXAL [Suspect]
     Active Substance: VALSARTAN
     Dosage: 80 MILLIGRAM, QD, 80 MG, QD (80 MG/ 12.5 MG)
     Route: 065
     Dates: start: 20180705, end: 20180715
  21. BERLOSIN [Concomitant]
     Active Substance: METAMIZOLE
     Indication: PRODUCT USED FOR UNKNOWN INDICATION
     Dosage: UNK
     Route: 065

REACTIONS (35)
  - Diverticulitis [Unknown]
  - Colitis [Unknown]
  - Dizziness [Recovered/Resolved]
  - Abdominal pain lower [Unknown]
  - Bone pain [Unknown]
  - Emotional distress [Unknown]
  - Gastrointestinal disorder [Recovered/Resolved]
  - Pharyngitis [Unknown]
  - Sleep disorder [Unknown]
  - Ligament injury [Unknown]
  - Loss of consciousness [Unknown]
  - Synovial cyst [Unknown]
  - Merycism [Unknown]
  - Poor quality sleep [Recovered/Resolved]
  - Angina pectoris [Recovered/Resolved]
  - Stenosis [Unknown]
  - Coronary artery disease [Unknown]
  - Blood pressure increased [Recovered/Resolved]
  - Irritable bowel syndrome [Unknown]
  - Anxiety [Recovered/Resolved]
  - Tinnitus [Unknown]
  - Oedema peripheral [Unknown]
  - Constipation [Unknown]
  - Arthralgia [Unknown]
  - Osteoarthritis [Unknown]
  - Sinus tachycardia [Unknown]
  - Fatigue [Unknown]
  - Headache [Unknown]
  - Diverticulum intestinal [Unknown]
  - Pain in extremity [Unknown]
  - Drug hypersensitivity [Unknown]
  - Granulomatosis with polyangiitis [Unknown]
  - Syncope [Unknown]
  - Apathy [Unknown]
  - Somatic symptom disorder [Unknown]

NARRATIVE: CASE EVENT DATE: 200104
